FAERS Safety Report 8197400-3 (Version None)
Quarter: 2012Q1

REPORT INFORMATION
  Report Type: 
  Country: None (occurrence: None)
  Receive Date: 20120307
  Receipt Date: 20120227
  Transmission Date: 20120608
  Serious: Yes (Hospitalization)
  Sender: FDA-Public Use
  Company Number: ACO_29524_2012

PATIENT
  Sex: Female

DRUGS (2)
  1. REBIF [Concomitant]
  2. AMPYRA [Suspect]
     Indication: PRODUCT USED FOR UNKNOWN INDICATION

REACTIONS (1)
  - CONVULSION [None]
